FAERS Safety Report 10136180 (Version 2)
Quarter: 2014Q2

REPORT INFORMATION
  Report Type: Spontaneous
  Country: US (occurrence: US)
  Receive Date: 20140429
  Receipt Date: 20140523
  Transmission Date: 20141212
  Serious: No
  Sender: FDA-Public Use
  Company Number: US-009507513-1404USA012619

PATIENT
  Age: 47 Year
  Sex: Female
  Weight: 103.4 kg

DRUGS (5)
  1. JANUVIA [Suspect]
     Indication: DIABETES MELLITUS
     Dosage: 100 MG (1 TABLET), ONCE A DAY
     Route: 048
  2. LEVOTHYROXINE SODIUM [Concomitant]
  3. PAXIL [Concomitant]
  4. DIOVAN [Concomitant]
  5. METFORMIN [Concomitant]

REACTIONS (8)
  - Chest discomfort [Recovered/Resolved]
  - Musculoskeletal chest pain [Recovered/Resolved]
  - Chest discomfort [Recovering/Resolving]
  - Musculoskeletal chest pain [Recovering/Resolving]
  - Contusion [Recovering/Resolving]
  - Blood glucose abnormal [Unknown]
  - Chest pain [Recovered/Resolved]
  - Musculoskeletal pain [Recovered/Resolved]
